FAERS Safety Report 14590299 (Version 1)
Quarter: 2018Q1

REPORT INFORMATION
  Report Type: Spontaneous
  Country: US (occurrence: US)
  Receive Date: 20180302
  Receipt Date: 20180302
  Transmission Date: 20180509
  Serious: No
  Sender: FDA-Public Use
  Company Number: US-PFIZER INC-2018082963

PATIENT
  Age: 7 Year
  Sex: Female

DRUGS (1)
  1. QUILLICHEW ER [Suspect]
     Active Substance: METHYLPHENIDATE HYDROCHLORIDE
     Dosage: 30 MG, DAILY (20MG IN THE AM AND ANOTHER 10MG IN THE AFTERNOON)

REACTIONS (2)
  - Disturbance in attention [Unknown]
  - Abnormal behaviour [Unknown]
